FAERS Safety Report 6060506-9 (Version None)
Quarter: 2009Q1

REPORT INFORMATION
  Report Type: 
  Country: None (occurrence: None)
  Receive Date: 20090202
  Receipt Date: 20090126
  Transmission Date: 20090719
  Serious: Yes (Other)
  Sender: FDA-Public Use
  Company Number: US-BAYER-200910244BCC

PATIENT
  Age: 80 Year
  Sex: Female
  Weight: 59 kg

DRUGS (9)
  1. PHILLIPS' MILK OF MAGNESIA CHERRY [Suspect]
     Indication: CONSTIPATION
  2. CAPOTEN [Concomitant]
  3. NEXIUM [Concomitant]
  4. POTASSIUM CHLORIDE [Concomitant]
  5. REGLAN [Concomitant]
  6. MULTIVITAMIN [Concomitant]
  7. ZETIA [Concomitant]
  8. MIACALCIN [Concomitant]
  9. METAMUCIL [Concomitant]

REACTIONS (1)
  - DRUG DEPENDENCE [None]
